FAERS Safety Report 5280599-6 (Version None)
Quarter: 2007Q1

REPORT INFORMATION
  Report Type: 
  Country: None (occurrence: None)
  Receive Date: 20061215
  Receipt Date: 20060912
  Transmission Date: 20070707
  Serious: Yes (Hospitalization)
  Sender: FDA-Public Use
  Company Number: HQWYE618313SEP06

PATIENT
  Sex: Female

DRUGS (5)
  1. EFFEXOR XR [Suspect]
     Dosage: SEE IMAGE
     Route: 048
     Dates: end: 20050601
  2. HUMALOG [Concomitant]
  3. BROMOCRIPTINE MESYLATE [Concomitant]
  4. SYNTHROID [Concomitant]
  5. ALBUTEROL [Concomitant]

REACTIONS (12)
  - AGGRESSION [None]
  - CHEST PAIN [None]
  - CONFUSIONAL STATE [None]
  - COORDINATION ABNORMAL [None]
  - DYSGRAPHIA [None]
  - HEARING IMPAIRED [None]
  - HYPERHIDROSIS [None]
  - HYPERTHYROIDISM [None]
  - MEMORY IMPAIRMENT [None]
  - MENTAL IMPAIRMENT [None]
  - SPEECH DISORDER [None]
  - WEIGHT DECREASED [None]
